FAERS Safety Report 8951428 (Version 1)
Quarter: 2012Q4

REPORT INFORMATION
  Report Type: 
  Country: ZA (occurrence: ZA)
  Receive Date: 20121207
  Receipt Date: 20121207
  Transmission Date: 20130627
  Serious: Yes (Other)
  Sender: FDA-Public Use
  Company Number: ZA-JNJFOC-20121115318

PATIENT
  Sex: Male

DRUGS (2)
  1. REVELLEX [Suspect]
     Indication: CROHN^S DISEASE
     Route: 042
     Dates: start: 20121107, end: 20121107
  2. REVELLEX [Suspect]
     Indication: CROHN^S DISEASE
     Dosage: 5 vials of induction dose
     Route: 042
     Dates: start: 20120418

REACTIONS (3)
  - Chest discomfort [Unknown]
  - Musculoskeletal stiffness [Unknown]
  - Infusion related reaction [Unknown]
